FAERS Safety Report 8179819-X (Version None)
Quarter: 2012Q1

REPORT INFORMATION
  Report Type: 
  Country: None (occurrence: None)
  Receive Date: 20120302
  Receipt Date: 20120223
  Transmission Date: 20120608
  Serious: Yes (Hospitalization, Other)
  Sender: FDA-Public Use
  Company Number: US-ASTELLAS-2011US007669

PATIENT
  Sex: Male
  Weight: 75 kg

DRUGS (3)
  1. ERLOTINIB HYDROCHLORIDE [Suspect]
     Indication: LUNG SQUAMOUS CELL CARCINOMA STAGE UNSPECIFIED
     Dosage: UNK MG, UID/QD
     Route: 048
     Dates: start: 20110901, end: 20111001
  2. ERLOTINIB HYDROCHLORIDE [Suspect]
     Dosage: 50 MG, UID/QD
     Route: 048
     Dates: start: 20110901, end: 20111001
  3. ERLOTINIB HYDROCHLORIDE [Suspect]
     Dosage: 150 MG, UNKNOWN/D
     Route: 048
     Dates: start: 20111001, end: 20111101

REACTIONS (7)
  - INCORRECT DOSE ADMINISTERED [None]
  - LARYNGEAL OEDEMA [None]
  - COMA [None]
  - CHRONIC OBSTRUCTIVE PULMONARY DISEASE [None]
  - PYREXIA [None]
  - ANAPHYLACTIC SHOCK [None]
  - IRON DEFICIENCY ANAEMIA [None]
